FAERS Safety Report 22081251 (Version 2)
Quarter: 2023Q1

REPORT INFORMATION
  Report Type: Spontaneous
  Country: AU (occurrence: AU)
  Receive Date: 20230309
  Receipt Date: 20230322
  Transmission Date: 20230418
  Serious: Yes (Other)
  Sender: FDA-Public Use
  Company Number: AU-TEVA-2023-AU-2863385

PATIENT
  Sex: Male

DRUGS (10)
  1. QUETIAPINE [Suspect]
     Active Substance: QUETIAPINE
     Indication: Bipolar II disorder
     Dosage: 25 MG , LOW DOSE
     Route: 065
  2. QUETIAPINE [Suspect]
     Active Substance: QUETIAPINE
     Dosage: 250 MILLIGRAM DAILY; INCREASED TO 250 MG ONCE A DAY
     Route: 065
  3. VALPROATE SODIUM [Suspect]
     Active Substance: VALPROATE SODIUM
     Indication: Bipolar II disorder
     Dosage: INITIAL DOSE NOT STATED
     Route: 065
  4. VALPROATE SODIUM [Suspect]
     Active Substance: VALPROATE SODIUM
     Dosage: 800 MILLIGRAM DAILY; INCREASED TO 800 MG ONCE A DAY
     Route: 065
  5. LACTOBACILLUS ACIDOPHILUS [Suspect]
     Active Substance: LACTOBACILLUS ACIDOPHILUS
     Indication: Bipolar II disorder
     Dosage: 32 BILLION CFU
     Route: 065
     Dates: start: 201907
  6. LACTOBACILLUS RHAMNOSUS [Suspect]
     Active Substance: LACTOBACILLUS RHAMNOSUS
     Indication: Bipolar II disorder
     Dosage: 4 BILLION CFU
     Route: 065
     Dates: start: 201907
  7. SACCHAROMYCES CEREVISIAE [Suspect]
     Active Substance: SACCHAROMYCES CEREVISIAE
     Indication: Bipolar II disorder
     Dosage: 4 BILLION CFU
     Route: 065
     Dates: start: 201907
  8. LAMOTRIGINE [Concomitant]
     Active Substance: LAMOTRIGINE
     Indication: Bipolar II disorder
     Dosage: INITIAL DOSE NOT STATED
     Route: 065
  9. LAMOTRIGINE [Concomitant]
     Active Substance: LAMOTRIGINE
     Dosage: NOCTE [TITRATED TO 200MG OVER EIGHT WEEKS]
     Route: 065
  10. LAMOTRIGINE [Concomitant]
     Active Substance: LAMOTRIGINE
     Dosage: 400 MILLIGRAM DAILY; INCREASED TO 400 MG ONCE A DAY
     Route: 065

REACTIONS (9)
  - Drug dependence [Recovered/Resolved]
  - Depressed level of consciousness [Recovering/Resolving]
  - Irritability [Recovering/Resolving]
  - Speech disorder [Recovering/Resolving]
  - Sleep deficit [Recovering/Resolving]
  - Hypomania [Recovering/Resolving]
  - Intentional product misuse [Unknown]
  - Food craving [Recovering/Resolving]
  - Weight increased [Recovered/Resolved]
